FAERS Safety Report 25445423 (Version 1)
Quarter: 2025Q2

REPORT INFORMATION
  Report Type: Spontaneous
  Country: JP (occurrence: JP)
  Receive Date: 20250617
  Receipt Date: 20250617
  Transmission Date: 20250717
  Serious: Yes (Other)
  Sender: MYLAN
  Company Number: JP-MYLANLABS-2025M1049853

PATIENT
  Age: 54 Year
  Sex: Male

DRUGS (2)
  1. EPIPEN [Suspect]
     Active Substance: EPINEPHRINE
     Indication: Anaphylactic shock
  2. EPIPEN [Suspect]
     Active Substance: EPINEPHRINE

REACTIONS (1)
  - Drug ineffective [Unknown]
